FAERS Safety Report 8246990-0 (Version None)
Quarter: 2012Q1

REPORT INFORMATION
  Report Type: 
  Country: None (occurrence: None)
  Receive Date: 20120330
  Receipt Date: 20120330
  Transmission Date: 20120608
  Serious: Yes (Hospitalization)
  Sender: FDA-Public Use
  Company Number: None

PATIENT
  Age: 87 Year
  Sex: Female
  Weight: 74.389 kg

DRUGS (9)
  1. TOPROL-XL [Concomitant]
  2. MULTI-VITAMINS [Concomitant]
  3. CALCIUM CARBONATE [Concomitant]
  4. LEXAPRO [Concomitant]
  5. MIRALAX [Concomitant]
  6. ZETIA [Concomitant]
  7. PRADAXA [Suspect]
     Indication: ATRIAL FIBRILLATION
  8. DULCOLAX [Concomitant]
  9. DETROL [Concomitant]

REACTIONS (5)
  - DIZZINESS [None]
  - ANAEMIA [None]
  - DYSPNOEA [None]
  - RECTAL HAEMORRHAGE [None]
  - FAECES DISCOLOURED [None]
